FAERS Safety Report 7672734-7 (Version None)
Quarter: 2011Q3

REPORT INFORMATION
  Report Type: 
  Country: None (occurrence: None)
  Receive Date: 20110809
  Receipt Date: 20110803
  Transmission Date: 20111222
  Serious: Yes (Other)
  Sender: FDA-Public Use
  Company Number: US-ABBOTT-11P-163-0844051-00

PATIENT
  Sex: Female
  Weight: 104.42 kg

DRUGS (8)
  1. SODIUM BICARBONATE [Concomitant]
     Indication: PRODUCT USED FOR UNKNOWN INDICATION
  2. FUROSEMIDE [Concomitant]
     Indication: FLUID RETENTION
  3. LISINOPRIL [Concomitant]
     Indication: HYPERTENSION
  4. TYLENOL-500 [Concomitant]
     Indication: OSTEOARTHRITIS
  5. ASPIRIN [Concomitant]
     Indication: PRODUCT USED FOR UNKNOWN INDICATION
  6. HUMIRA [Suspect]
     Dates: start: 20100701
  7. CALCITRIOL [Concomitant]
     Indication: PARATHYROID DISORDER
  8. HUMIRA [Suspect]
     Indication: RHEUMATOID ARTHRITIS
     Dates: start: 20080101, end: 20100401

REACTIONS (2)
  - DEAFNESS [None]
  - VIRAL INFECTION [None]
